FAERS Safety Report 18335564 (Version 4)
Quarter: 2024Q3

REPORT INFORMATION
  Report Type: Spontaneous
  Country: IE (occurrence: IE)
  Receive Date: 20201001
  Receipt Date: 20240809
  Transmission Date: 20241017
  Serious: Yes (Hospitalization, Other)
  Sender: AMGEN
  Company Number: IE-AMGEN-IRLSP2020156889

PATIENT
  Age: 64 Year
  Sex: Female

DRUGS (30)
  1. PROLIA [Suspect]
     Active Substance: DENOSUMAB
     Indication: Bone density abnormal
     Dosage: 60 MILLIGRAM, Q6MO (7 INJECTIONS ADMINISTERED IN TOTAL)
     Route: 058
     Dates: start: 201407, end: 201712
  2. ERYTHROCIN [Concomitant]
     Active Substance: ERYTHROMYCIN LACTOBIONATE
     Dosage: UNK UNK, Q6H (DURATION: 1 WEEK)
  3. CLINDAMYCIN [Concomitant]
     Active Substance: CLINDAMYCIN
     Dosage: UNK UNK, Q12H
  4. ZOVIRAX [Concomitant]
     Active Substance: ACYCLOVIR
     Dosage: 200 MILLIGRAM, Q6H (DURATION: 7 DAYS)
  5. ZOMIG [Concomitant]
     Active Substance: ZOLMITRIPTAN
     Dosage: 2.5 MILLIGRAM (STRENGTH:75 MG)
  6. DOXYCYCLINE [Concomitant]
     Active Substance: DOXYCYCLINE\DOXYCYCLINE HYCLATE
     Dosage: 100 MILLIGRAM, QD (STRENGTH: 100 MG)
  7. AUGMENTIN [Concomitant]
     Active Substance: AMOXICILLIN\CLAVULANATE POTASSIUM
     Dosage: UNK UNK, Q8H
  8. CARBOMER [Concomitant]
     Active Substance: CARBOMER
     Dosage: (0.2 % W/W EYE GEL)
  9. FELDENE [Concomitant]
     Active Substance: PIROXICAM
  10. DOXYCYCLINE HYCLATE [Concomitant]
     Active Substance: DOXYCYCLINE HYCLATE
  11. Betnesol [Concomitant]
     Dosage: UNK UNK, Q12H (DURATION: 2 WEEKS)
  12. DICLOFENAC SODIUM [Concomitant]
     Active Substance: DICLOFENAC\DICLOFENAC SODIUM
     Dosage: 100 MILLIGRAM, Q12H
  13. FLUTICASONE FUROATE [Concomitant]
     Active Substance: FLUTICASONE FUROATE
     Dosage: 0.0275 MILLIGRAM
  14. AZITHROMYCIN [Concomitant]
     Active Substance: AZITHROMYCIN
     Dosage: UNK UNK, Q12H
  15. SERLAN [Concomitant]
     Dosage: UNK UNK, QD
  16. BROMAZEPAM [Concomitant]
     Active Substance: BROMAZEPAM
     Dosage: 3 MILLIGRAM, QD
  17. Flucol [Concomitant]
     Dosage: 150 MILLIGRAM
  18. CALCIUM CARBONATE\CHOLECALCIFEROL [Concomitant]
     Active Substance: CALCIUM CARBONATE\CHOLECALCIFEROL
     Dosage: UNK UNK, QD (STRENGTH: 1250 MG)
  19. MOVIPREP [Concomitant]
     Active Substance: ASCORBIC ACID\POLYETHYLENE GLYCOL 3350\POTASSIUM CHLORIDE\SODIUM ASCORBATE\SODIUM CHLORIDE\SODIUM SU
     Dosage: UNK GRAM (STRENGTH: 4.7 GRAM)
  20. NUPRIN [Concomitant]
     Active Substance: IBUPROFEN
     Dosage: 75 MILLIGRAM, QD
  21. MOVICOL [Concomitant]
     Active Substance: POLYETHYLENE GLYCOL 3350\POTASSIUM CHLORIDE\SODIUM BICARBONATE\SODIUM CHLORIDE
     Dosage: UNK UNK, QD
  22. CHLOROMYCETIN [Concomitant]
     Active Substance: CHLORAMPHENICOL
  23. ZOLPIDEM [Concomitant]
     Active Substance: ZOLPIDEM TARTRATE
     Dosage: UNK UNK, QD
  24. ZOMIG [Concomitant]
     Active Substance: ZOLMITRIPTAN
     Dosage: 2.5 MILLIGRAM (ONCE A WEEK OR AS DIRECTED)
  25. ARCOXIA [Concomitant]
     Active Substance: ETORICOXIB
     Dosage: 60 MILLIGRAM, QD
  26. DIFLUCAN [Concomitant]
     Active Substance: FLUCONAZOLE
     Dosage: 150 MILLIGRAM
  27. CLARITHROMYCIN [Concomitant]
     Active Substance: CLARITHROMYCIN
     Route: 048
     Dates: end: 20170529
  28. CLARITHROMYCIN [Concomitant]
     Active Substance: CLARITHROMYCIN
     Route: 048
     Dates: end: 20171218
  29. CLARITHROMYCIN [Concomitant]
     Active Substance: CLARITHROMYCIN
     Route: 048
  30. CLARITHROMYCIN [Concomitant]
     Active Substance: CLARITHROMYCIN
     Route: 048
     Dates: end: 20170802

REACTIONS (21)
  - Tenosynovitis [Not Recovered/Not Resolved]
  - Peripheral swelling [Not Recovered/Not Resolved]
  - Bone density decreased [Not Recovered/Not Resolved]
  - Pain [Not Recovered/Not Resolved]
  - Quality of life decreased [Not Recovered/Not Resolved]
  - Neuralgia [Not Recovered/Not Resolved]
  - Calcium deficiency [Not Recovered/Not Resolved]
  - Rheumatoid arthritis [Not Recovered/Not Resolved]
  - Abscess jaw [Not Recovered/Not Resolved]
  - Lumbar vertebral fracture [Not Recovered/Not Resolved]
  - Burning sensation [Not Recovered/Not Resolved]
  - Movement disorder [Not Recovered/Not Resolved]
  - Chronic sinusitis [Not Recovered/Not Resolved]
  - Spinal stenosis [Not Recovered/Not Resolved]
  - Back pain [Not Recovered/Not Resolved]
  - Erythema [Not Recovered/Not Resolved]
  - Sense of a foreshortened future [Not Recovered/Not Resolved]
  - Neck pain [Not Recovered/Not Resolved]
  - COVID-19 [Not Recovered/Not Resolved]
  - Back pain [Not Recovered/Not Resolved]
  - Impaired work ability [Unknown]

NARRATIVE: CASE EVENT DATE: 20170101
